FAERS Safety Report 7535813-0 (Version None)
Quarter: 2011Q2

REPORT INFORMATION
  Report Type: 
  Country: None (occurrence: None)
  Receive Date: 20110607
  Receipt Date: 20110607
  Transmission Date: 20111010
  Serious: Yes (Other)
  Sender: FDA-Public Use
  Company Number: None

PATIENT
  Age: 64 Year
  Sex: Female
  Weight: 70.3075 kg

DRUGS (1)
  1. SAVELLA [Suspect]
     Indication: FIBROMYALGIA
     Dosage: 25 MG. TWICE A DAY PO
     Route: 048
     Dates: start: 20110518, end: 20110603

REACTIONS (8)
  - DIZZINESS [None]
  - HYPERTENSION [None]
  - ABNORMAL DREAMS [None]
  - HEART RATE INCREASED [None]
  - FEELING ABNORMAL [None]
  - INSOMNIA [None]
  - THIRST [None]
  - HYPERHIDROSIS [None]
